FAERS Safety Report 23350619 (Version 2)
Quarter: 2024Q1

REPORT INFORMATION
  Report Type: Spontaneous
  Country: CA (occurrence: CA)
  Receive Date: 20231229
  Receipt Date: 20240118
  Transmission Date: 20240409
  Serious: Yes (Hospitalization, Other)
  Sender: FDA-Public Use
  Company Number: CA-CELLTRION INC.-2023CA024936

PATIENT

DRUGS (10)
  1. INFLECTRA [Suspect]
     Active Substance: INFLIXIMAB-DYYB
     Indication: Rheumatoid arthritis
     Dosage: 500 MG EVERY 6 WEEKS
     Route: 042
     Dates: start: 20200915, end: 20230704
  2. INFLECTRA [Suspect]
     Active Substance: INFLIXIMAB-DYYB
     Dosage: 400 MG EVERY 6 WEEKS
     Route: 042
     Dates: start: 20230825
  3. INFLECTRA [Suspect]
     Active Substance: INFLIXIMAB-DYYB
     Dosage: 400 MG EVERY 6 WEEKS
     Route: 042
     Dates: start: 20231117
  4. INFLECTRA [Suspect]
     Active Substance: INFLIXIMAB-DYYB
     Dosage: 400 MG EVERY 6 WEEKS (AFTER 7 WEEKS AND 5 DAYS)
     Route: 042
     Dates: start: 20240110
  5. ATORVASTATIN [Concomitant]
     Active Substance: ATORVASTATIN
     Dosage: 40 MG
  6. BUPROPION [Concomitant]
     Active Substance: BUPROPION
     Dosage: 150 MG
  7. DILTIAZEM [Concomitant]
     Active Substance: DILTIAZEM
     Dosage: 360 MG
  8. INDAPAMIDE [Concomitant]
     Active Substance: INDAPAMIDE
     Dosage: 2.5 MG
  9. OMEPRAZOLE [Concomitant]
     Active Substance: OMEPRAZOLE
     Dosage: 20 MG
  10. RAMIPRIL [Concomitant]
     Active Substance: RAMIPRIL
     Dosage: 15 MG

REACTIONS (1)
  - Stoma creation [Recovering/Resolving]

NARRATIVE: CASE EVENT DATE: 20231201
